FAERS Safety Report 24125458 (Version 1)
Quarter: 2024Q3

REPORT INFORMATION
  Report Type: Spontaneous
  Country: CN (occurrence: CN)
  Receive Date: 20240723
  Receipt Date: 20240723
  Transmission Date: 20241016
  Serious: Yes (Other)
  Sender: TEVA
  Company Number: CN-TEVA-VS-3147705

PATIENT

DRUGS (2)
  1. TREANDA [Suspect]
     Active Substance: BENDAMUSTINE HYDROCHLORIDE
     Indication: Product used for unknown indication
     Route: 065
  2. GAZYVA [Concomitant]
     Active Substance: OBINUTUZUMAB

REACTIONS (6)
  - Pulmonary congestion [Unknown]
  - Off label use [Unknown]
  - Dizziness [Unknown]
  - Hyperhidrosis [Unknown]
  - Constipation [Unknown]
  - Blood pressure decreased [Unknown]

NARRATIVE: CASE EVENT DATE: 20240112
